FAERS Safety Report 4750927-6 (Version None)
Quarter: 2005Q3

REPORT INFORMATION
  Report Type: 
  Country: None (occurrence: None)
  Receive Date: 20050818
  Receipt Date: 20050807
  Transmission Date: 20060218
  Serious: Yes (Other)
  Sender: FDA-Public Use
  Company Number: 2005111083

PATIENT
  Age: 23 Year
  Sex: Female
  Weight: 81.6475 kg

DRUGS (1)
  1. HYDROCORTISONE [Suspect]
     Indication: BLISTER
     Dosage: 2 Q-TIPS FULL, TOPICAL
     Route: 061
     Dates: start: 20050803, end: 20050804

REACTIONS (3)
  - BLISTER [None]
  - PAIN [None]
  - URINARY TRACT INFECTION [None]
